FAERS Safety Report 13043067 (Version 2)
Quarter: 2016Q4

REPORT INFORMATION
  Report Type: Spontaneous
  Country: CN (occurrence: CN)
  Receive Date: 20161219
  Receipt Date: 20161221
  Transmission Date: 20170207
  Serious: Yes (Other)
  Sender: FDA-Public Use
  Company Number: PHHY2016CN173933

PATIENT
  Age: 52 Year
  Sex: Male

DRUGS (5)
  1. CICLOSPORIN [Suspect]
     Active Substance: CYCLOSPORINE
     Indication: NEPHROTIC SYNDROME
     Dosage: 50 MG, BID
     Route: 048
  2. CICLOSPORIN [Interacting]
     Active Substance: CYCLOSPORINE
     Indication: CHRONIC KIDNEY DISEASE
  3. VORICONAZOLE. [Suspect]
     Active Substance: VORICONAZOLE
     Indication: FUNGAL INFECTION
     Dosage: 200 MG, BID
     Route: 048
  4. PREDNISONE. [Interacting]
     Active Substance: PREDNISONE
     Indication: NEPHROTIC SYNDROME
     Dosage: 50 MG, QD
     Route: 048
  5. PREDNISONE. [Interacting]
     Active Substance: PREDNISONE
     Indication: CHRONIC KIDNEY DISEASE
     Dosage: 40 MG, QD
     Route: 048

REACTIONS (6)
  - Tremor [Recovering/Resolving]
  - Blood potassium increased [Recovering/Resolving]
  - Fungal infection [Unknown]
  - Pleural effusion [Unknown]
  - Drug interaction [Unknown]
  - Immunosuppressant drug level increased [Unknown]
